FAERS Safety Report 5985900-3 (Version None)
Quarter: 2008Q4

REPORT INFORMATION
  Report Type: 
  Country: None (occurrence: None)
  Receive Date: 20081203
  Receipt Date: 20081203
  Transmission Date: 20090506
  Serious: No
  Sender: FDA-Public Use
  Company Number: None

PATIENT
  Age: 28 Year
  Sex: Female
  Weight: 65.318 kg

DRUGS (1)
  1. AMPHETAMINE AND DEXTROAMPHETAMINE SALTS [Suspect]
     Indication: ATTENTION DEFICIT/HYPERACTIVITY DISORDER
     Dosage: 20MG 1 BY MOUTH TID
     Route: 048
     Dates: start: 20080908, end: 20081015

REACTIONS (2)
  - RASH PRURITIC [None]
  - REACTION TO DRUG EXCIPIENTS [None]
